FAERS Safety Report 11794135 (Version 1)
Quarter: 2015Q4

REPORT INFORMATION
  Report Type: Spontaneous
  Country: KR (occurrence: KR)
  Receive Date: 20151202
  Receipt Date: 20151202
  Transmission Date: 20160305
  Serious: Yes (Hospitalization)
  Sender: FDA-Public Use
  Company Number: KR-HQ SPECIALTY-KR-2015INT000656

PATIENT

DRUGS (4)
  1. CISPLATIN. [Suspect]
     Active Substance: CISPLATIN
     Indication: ADENOID CYSTIC CARCINOMA
     Dosage: 80 MG/M2, 1 HOUR INFUSION, 1 CYCLE
     Route: 013
  2. CISPLATIN. [Suspect]
     Active Substance: CISPLATIN
     Dosage: 60 MG/M2, FOR 1 HOUR, 2ND AND 3RD CYCLE
     Route: 013
  3. DOXORUBICIN [Suspect]
     Active Substance: DOXORUBICIN
     Indication: ADENOID CYSTIC CARCINOMA
     Dosage: 25 MG/M2, 1 CYCLE
     Route: 042
  4. DOXORUBICIN [Suspect]
     Active Substance: DOXORUBICIN
     Dosage: UNK, 2ND AND 3RD CYCLES

REACTIONS (7)
  - Phlebitis [Unknown]
  - Viral infection [Unknown]
  - Blister [Recovered/Resolved]
  - Febrile neutropenia [Unknown]
  - Cellulitis [Unknown]
  - Erythema [Recovered/Resolved]
  - Bone erosion [Unknown]
